FAERS Safety Report 12942929 (Version 2)
Quarter: 2016Q4

REPORT INFORMATION
  Report Type: Spontaneous
  Country: IN (occurrence: IN)
  Receive Date: 20161115
  Receipt Date: 20161205
  Transmission Date: 20170207
  Serious: Yes (Other)
  Sender: FDA-Public Use
  Company Number: ALCN2016IN007419

PATIENT
  Age: 55 Year
  Sex: Male

DRUGS (1)
  1. PREDNISOLONE ACETATE. [Suspect]
     Active Substance: PREDNISOLONE ACETATE
     Indication: ULCERATIVE KERATITIS
     Dosage: 1 DF, Q4H
     Route: 047

REACTIONS (8)
  - Corneal thinning [Recovering/Resolving]
  - Corneal epithelium defect [Recovering/Resolving]
  - Drug ineffective [Unknown]
  - Corneal infiltrates [Recovering/Resolving]
  - Eye infection syphilitic [Recovering/Resolving]
  - Ulcerative keratitis [Recovering/Resolving]
  - Eye pain [Recovering/Resolving]
  - Ciliary hyperaemia [Recovering/Resolving]
